FAERS Safety Report 6075651-1 (Version None)
Quarter: 2009Q1

REPORT INFORMATION
  Report Type: 
  Country: None (occurrence: None)
  Receive Date: 20090210
  Receipt Date: 20090210
  Transmission Date: 20090719
  Serious: Yes (Other)
  Sender: FDA-Public Use
  Company Number: None

PATIENT
  Age: 56 Year
  Sex: Male
  Weight: 106.5953 kg

DRUGS (4)
  1. FINASTERIDE [Suspect]
     Indication: BENIGN PROSTATIC HYPERPLASIA
     Dosage: 1/4 PILL DAILY PO
     Route: 048
     Dates: start: 20081115, end: 20090209
  2. LIPITOR [Concomitant]
  3. ANDROGEL [Concomitant]
  4. LISINOPRIL/HCT [Concomitant]

REACTIONS (2)
  - EJACULATION DELAYED [None]
  - EJACULATION FAILURE [None]
